FAERS Safety Report 4392127-8 (Version None)
Quarter: 2004Q3

REPORT INFORMATION
  Report Type: 
  Country: None (occurrence: None)
  Receive Date: 20040702
  Receipt Date: 20040316
  Transmission Date: 20050211
  Serious: Yes (Other)
  Sender: FDA-Public Use
  Company Number: 2003UW15691

PATIENT
  Age: 39 Year
  Sex: Male
  Weight: 83.9154 kg

DRUGS (2)
  1. CRESTOR [Suspect]
     Indication: HYPERCHOLESTEROLAEMIA
     Dosage: 10 MG QD PO
     Route: 048
     Dates: start: 20031119, end: 20031123
  2. CIPRO [Concomitant]

REACTIONS (3)
  - DYSPEPSIA [None]
  - ORAL MUCOSAL BLISTERING [None]
  - TONGUE DISCOLOURATION [None]
